FAERS Safety Report 5130183-X (Version None)
Quarter: 2006Q4

REPORT INFORMATION
  Report Type: 
  Country: None (occurrence: None)
  Receive Date: 20061013
  Receipt Date: 20060926
  Transmission Date: 20070319
  Serious: Yes (Hospitalization, Other)
  Sender: FDA-Public Use
  Company Number: US200608003130

PATIENT
  Sex: 0
  Weight: 1.4 kg

DRUGS (7)
  1. HUMULIN R [Suspect]
     Dosage: TRANSPLACENTAL
     Route: 064
  2. HUMULIN N [Suspect]
     Dosage: TRANSPLACENTAL
     Route: 064
  3. ALDOMET [Concomitant]
  4. LABETALOL HCL [Concomitant]
  5. HYDROCHLOROTHIAZIDE [Concomitant]
  6. MAGNESIUM SULFATE [Concomitant]
  7. DEXTROSE INJECTION (GLUCOSE INJECTION) [Concomitant]

REACTIONS (4)
  - CAESAREAN SECTION [None]
  - DRUG EXPOSURE DURING PREGNANCY [None]
  - DRUG EXPOSURE VIA BREAST MILK [None]
  - PREMATURE BABY [None]
